FAERS Safety Report 6309720-5 (Version None)
Quarter: 2009Q3

REPORT INFORMATION
  Report Type: 
  Country: None (occurrence: None)
  Receive Date: 20090814
  Receipt Date: 20090810
  Transmission Date: 20100115
  Serious: Yes (Death, Hospitalization, Other)
  Sender: FDA-Public Use
  Company Number: PHHY2009AU09901

PATIENT
  Sex: Female

DRUGS (8)
  1. CLOZARIL [Suspect]
     Dosage: 425 MG
     Route: 048
     Dates: start: 19970729, end: 20090316
  2. CLOZARIL [Suspect]
     Dosage: 50 MG, DAILY
     Route: 048
     Dates: start: 20090317
  3. CLOZARIL [Suspect]
     Dosage: 25 MG DAILY
     Route: 048
     Dates: start: 20090324
  4. CLOZARIL [Suspect]
     Dosage: 50 MG, DAILY
     Route: 048
     Dates: start: 20090331
  5. CLOZARIL [Suspect]
     Dosage: 62.5 MG, DAILY
     Route: 048
     Dates: start: 20090407
  6. CLOZARIL [Suspect]
     Dosage: 75 MG, DAILY
     Route: 048
     Dates: start: 20090414
  7. CLOZARIL [Suspect]
     Dosage: 150 MG, DAILY
     Route: 048
     Dates: end: 20090422
  8. PAROXETINE HCL [Concomitant]
     Dosage: 20 MG, QHS
     Dates: start: 20070101

REACTIONS (16)
  - ABDOMINAL DISCOMFORT [None]
  - ABDOMINAL PAIN [None]
  - ASTHENIA [None]
  - CHOLANGITIS [None]
  - CHOLELITHIASIS [None]
  - DECREASED APPETITE [None]
  - GENERAL PHYSICAL HEALTH DETERIORATION [None]
  - HEPATIC CANCER METASTATIC [None]
  - HYPOTENSION [None]
  - JAUNDICE [None]
  - LIVER FUNCTION TEST ABNORMAL [None]
  - PANCREATIC CARCINOMA [None]
  - PULSE PRESSURE DECREASED [None]
  - TERMINAL STATE [None]
  - TREATMENT NONCOMPLIANCE [None]
  - WEIGHT DECREASED [None]
